FAERS Safety Report 9801546 (Version 2)
Quarter: 2015Q3

REPORT INFORMATION
  Report Type: Spontaneous
  Country: US (occurrence: US)
  Receive Date: 20140107
  Receipt Date: 20150730
  Transmission Date: 20151125
  Serious: No
  Sender: FDA-Public Use
  Company Number: US-GILEAD-2010-0033146

PATIENT
  Age: 68 Year
  Sex: Female

DRUGS (1)
  1. RANEXA [Suspect]
     Active Substance: RANOLAZINE
     Indication: DIASTOLIC DYSFUNCTION
     Route: 048

REACTIONS (4)
  - Urine odour abnormal [Unknown]
  - Off label use [Unknown]
  - Pruritus [Unknown]
  - Labelled drug-drug interaction medication error [Unknown]
